FAERS Safety Report 25131514 (Version 1)
Quarter: 2025Q1

REPORT INFORMATION
  Report Type: Spontaneous
  Country: CN (occurrence: CN)
  Receive Date: 20250327
  Receipt Date: 20250327
  Transmission Date: 20250408
  Serious: Yes (Life-Threatening, Other)
  Sender: PFIZER
  Company Number: CN-PFIZER INC-PV202500037017

PATIENT
  Age: 68 Year
  Sex: Female
  Weight: 55 kg

DRUGS (1)
  1. SOLU-MEDROL [Suspect]
     Active Substance: METHYLPREDNISOLONE SODIUM SUCCINATE
     Indication: Symptomatic treatment
     Dosage: 40 MG, 1X/DAY
     Route: 041
     Dates: start: 20250209, end: 20250209

REACTIONS (1)
  - Anaphylactic shock [Recovering/Resolving]

NARRATIVE: CASE EVENT DATE: 20250209
